FAERS Safety Report 8320506-2 (Version None)
Quarter: 2012Q2

REPORT INFORMATION
  Report Type: 
  Country: None (occurrence: None)
  Receive Date: 20120427
  Receipt Date: 20120427
  Transmission Date: 20120825
  Serious: Yes (Life-Threatening, Hospitalization)
  Sender: FDA-Public Use
  Company Number: None

PATIENT
  Age: 42 Year
  Sex: Male

DRUGS (1)
  1. RITUXIMAB [Suspect]

REACTIONS (6)
  - HYPOTENSION [None]
  - SLOW RESPONSE TO STIMULI [None]
  - ASTHENIA [None]
  - ATRIAL FIBRILLATION [None]
  - CHILLS [None]
  - BRADYCARDIA [None]
